FAERS Safety Report 8159114-5 (Version None)
Quarter: 2012Q1

REPORT INFORMATION
  Report Type: 
  Country: None (occurrence: None)
  Receive Date: 20120223
  Receipt Date: 20120213
  Transmission Date: 20120608
  Serious: No
  Sender: FDA-Public Use
  Company Number: US-ELI_LILLY_AND_COMPANY-US201112006292

PATIENT
  Age: 53 Year
  Sex: Male
  Weight: 91.156 kg

DRUGS (4)
  1. CYMBALTA [Suspect]
     Dosage: 30 MG, QD
     Route: 048
  2. CYMBALTA [Suspect]
     Indication: MAJOR DEPRESSION
     Dosage: 30 MG, QD
     Route: 048
     Dates: start: 20111216
  3. CYMBALTA [Suspect]
     Dosage: 60 MG, QD
     Route: 048
  4. CYMBALTA [Suspect]
     Dosage: 30 MG, QD
     Route: 048
     Dates: start: 20120116

REACTIONS (12)
  - STRESS [None]
  - IRRITABILITY [None]
  - INSOMNIA [None]
  - NERVOUSNESS [None]
  - PAIN [None]
  - DEPRESSION [None]
  - INCOHERENT [None]
  - ERECTILE DYSFUNCTION [None]
  - AGITATION [None]
  - ANXIETY [None]
  - DRUG INEFFECTIVE [None]
  - SEXUAL DYSFUNCTION [None]
